FAERS Safety Report 16397728 (Version 1)
Quarter: 2019Q2

REPORT INFORMATION
  Report Type: Report from Study
  Country: US (occurrence: US)
  Receive Date: 20190606
  Receipt Date: 20190606
  Transmission Date: 20190711
  Serious: Yes (Hospitalization)
  Sender: FDA-Public Use
  Company Number: US-UNITED THERAPEUTICS-UNT-2019-009712

PATIENT
  Age: 77 Year
  Sex: Female

DRUGS (1)
  1. TREPROSTINIL SODIUM (INHALED) [Suspect]
     Active Substance: TREPROSTINIL SODIUM
     Indication: PULMONARY ARTERIAL HYPERTENSION
     Dosage: 54 ?G, QID
     Dates: start: 201905

REACTIONS (3)
  - Haematochezia [Recovering/Resolving]
  - Blood count abnormal [Recovering/Resolving]
  - Throat irritation [Unknown]

NARRATIVE: CASE EVENT DATE: 201905
